FAERS Safety Report 6822185-X (Version None)
Quarter: 2010Q3

REPORT INFORMATION
  Report Type: 
  Country: None (occurrence: None)
  Receive Date: 20100708
  Receipt Date: 20100628
  Transmission Date: 20110219
  Serious: Yes (Hospitalization)
  Sender: FDA-Public Use
  Company Number: FR-SOLVAY-00210004155

PATIENT
  Age: 28622 Day
  Sex: Female

DRUGS (7)
  1. DEBRIDAT [Suspect]
     Indication: GASTROINTESTINAL PAIN
     Dosage: DAILY DOSE:  UNKNOWN
     Route: 048
  2. INIPOMP [Suspect]
     Indication: PROPHYLAXIS AGAINST GASTROINTESTINAL ULCER
     Dosage: DAILY DOSE:  UNKNOWN
     Route: 048
  3. IMOVANE [Suspect]
     Indication: INSOMNIA
     Dosage: DAILY DOSE:  UNKNOWN
     Route: 048
  4. FUROSEMIDE [Suspect]
     Indication: HYPERTENSION
     Dosage: DAILY DOSE:  UNKNOWN
     Route: 048
  5. AMIODARONE HCL [Suspect]
     Indication: ATRIAL FIBRILLATION
     Dosage: DAILY DOSE:  UNKNOWN
     Route: 048
  6. PREVISCAN [Suspect]
     Indication: PRODUCT USED FOR UNKNOWN INDICATION
     Dosage: DAILY DOSE:  UNKNOWN
     Route: 048
     Dates: end: 20090112
  7. COVERSYL 2 MG [Suspect]
     Indication: HYPERTENSION
     Dosage: DAILY DOSE:  UNKNOWN
     Route: 048

REACTIONS (5)
  - DEHYDRATION [None]
  - EPISTAXIS [None]
  - INTERNATIONAL NORMALISED RATIO INCREASED [None]
  - PNEUMONIA ASPIRATION [None]
  - RENAL FAILURE [None]
